FAERS Safety Report 7140342-2 (Version None)
Quarter: 2010Q4

REPORT INFORMATION
  Report Type: 
  Country: None (occurrence: None)
  Receive Date: 20101207
  Receipt Date: 20101203
  Transmission Date: 20110411
  Serious: Yes (Other)
  Sender: FDA-Public Use
  Company Number: US-BIOGENIDEC-2010BI036184

PATIENT
  Age: 56 Year
  Sex: Female

DRUGS (4)
  1. AVONEX [Suspect]
     Indication: MULTIPLE SCLEROSIS
     Route: 030
     Dates: start: 20030101
  2. AVONEX [Suspect]
     Route: 030
     Dates: start: 19980901, end: 20030101
  3. ALEVE (CAPLET) [Concomitant]
     Indication: PREMEDICATION
     Route: 048
  4. MAGNESIUM SUPPLEMENT [Concomitant]
     Indication: CARDIOVASCULAR EVENT PROPHYLAXIS
     Route: 048
     Dates: start: 20100101, end: 20101001

REACTIONS (9)
  - CHILLS [None]
  - CONTUSION [None]
  - DYSSTASIA [None]
  - FALL [None]
  - INFLUENZA LIKE ILLNESS [None]
  - MUSCLE DISORDER [None]
  - ORAL HERPES [None]
  - PYREXIA [None]
  - URINARY INCONTINENCE [None]
